FAERS Safety Report 20876755 (Version 1)
Quarter: 2022Q2

REPORT INFORMATION
  Report Type: Spontaneous
  Country: FR (occurrence: FR)
  Receive Date: 20220526
  Receipt Date: 20220526
  Transmission Date: 20220721
  Serious: Yes (Death, Life-Threatening, Hospitalization, Other)
  Sender: FDA-Public Use
  Company Number: FR-AMNEAL PHARMACEUTICALS-2022-AMRX-01493

PATIENT
  Age: 32 Year
  Sex: Female

DRUGS (1)
  1. TRAMADOL HYDROCHLORIDE [Suspect]
     Active Substance: TRAMADOL HYDROCHLORIDE
     Indication: Product used for unknown indication
     Dosage: 9000 MILLIGRAM
     Route: 065

REACTIONS (7)
  - Brain injury [Fatal]
  - Brain death [Fatal]
  - Encephalopathy [Unknown]
  - Eyelid myoclonus [Unknown]
  - Overdose [Fatal]
  - Coma [Unknown]
  - Mydriasis [Unknown]
